FAERS Safety Report 21549680 (Version 2)
Quarter: 2022Q4

REPORT INFORMATION
  Report Type: Report from Study
  Country: US (occurrence: US)
  Receive Date: 20221103
  Receipt Date: 20221116
  Transmission Date: 20230113
  Serious: Yes (Hospitalization, Other)
  Sender: FDA-Public Use
  Company Number: US-XERIS PHARMACEUTICALS-2022XER00365

PATIENT
  Sex: Female

DRUGS (1)
  1. KEVEYIS [Suspect]
     Active Substance: DICHLORPHENAMIDE
     Indication: Paralysis
     Dosage: 1 TABLET (50 MG), 1X/DAY
     Route: 048
     Dates: start: 20221011

REACTIONS (11)
  - Chest pain [Unknown]
  - Heart rate irregular [Unknown]
  - Loss of control of legs [Unknown]
  - Paraesthesia [Recovered/Resolved]
  - Surgery [Recovering/Resolving]
  - Hepatic enzyme increased [Unknown]
  - Complication of device insertion [Not Recovered/Not Resolved]
  - Memory impairment [Not Recovered/Not Resolved]
  - Burning sensation [Recovering/Resolving]
  - Cognitive disorder [Not Recovered/Not Resolved]
  - Confusional state [Not Recovered/Not Resolved]

NARRATIVE: CASE EVENT DATE: 20220101
